FAERS Safety Report 16095442 (Version 1)
Quarter: 2019Q1

REPORT INFORMATION
  Report Type: Spontaneous
  Country: PR (occurrence: PR)
  Receive Date: 20190320
  Receipt Date: 20190320
  Transmission Date: 20190418
  Serious: No
  Sender: FDA-Public Use
  Company Number: None

PATIENT
  Age: 36 Year
  Sex: Female
  Weight: 58.5 kg

DRUGS (1)
  1. KIRKLAND SIGNATURE ALLER FEX [Suspect]
     Active Substance: FEXOFENADINE HYDROCHLORIDE
     Indication: HYPERSENSITIVITY
     Dosage: ?          QUANTITY:1 TABLET(S);?
     Route: 048

REACTIONS (7)
  - Insomnia [None]
  - Product substitution issue [None]
  - Otitis media [None]
  - Eczema [None]
  - Ear congestion [None]
  - Ear pain [None]
  - Otitis externa [None]
